FAERS Safety Report 9773764 (Version 1)
Quarter: 2013Q4

REPORT INFORMATION
  Report Type: Spontaneous
  Country: US (occurrence: US)
  Receive Date: 20131219
  Receipt Date: 20131219
  Transmission Date: 20140711
  Serious: Yes (Death)
  Sender: FDA-Public Use
  Company Number: US-ROCHE-1322791

PATIENT
  Sex: Male
  Weight: 54.93 kg

DRUGS (5)
  1. AVASTIN [Suspect]
     Indication: PRODUCT USED FOR UNKNOWN INDICATION
     Route: 065
     Dates: start: 20110324
  2. 5-FU [Concomitant]
  3. ABRAXANE [Concomitant]
  4. CPT-11 [Concomitant]
  5. LEUCOVORIN [Concomitant]

REACTIONS (1)
  - Death [Fatal]
